FAERS Safety Report 17459938 (Version 3)
Quarter: 2020Q3

REPORT INFORMATION
  Report Type: Spontaneous
  Country: PL (occurrence: PL)
  Receive Date: 20200226
  Receipt Date: 20200720
  Transmission Date: 20201102
  Serious: Yes (Hospitalization, Other)
  Sender: FDA-Public Use
  Company Number: PL-GILEAD-2020-0452503

PATIENT
  Age: 43 Year
  Sex: Female
  Weight: 63.5 kg

DRUGS (7)
  1. LETROX [Concomitant]
     Active Substance: LEVOTHYROXINE SODIUM
  2. EPCLUSA [Suspect]
     Active Substance: SOFOSBUVIR\VELPATASVIR
     Indication: CHRONIC HEPATITIS C
     Dosage: 1 DOSAGE FORM
     Route: 048
     Dates: start: 20200222, end: 20200222
  3. KALIPOZ [Concomitant]
     Active Substance: POTASSIUM CHLORIDE
  4. CYCLONAMINE [Concomitant]
     Active Substance: ETHAMSYLATE
  5. PRAZOLEX [OMEPRAZOLE] [Concomitant]
  6. TOPAMAX [Concomitant]
     Active Substance: TOPIRAMATE
  7. DEPAKINE [VALPROIC ACID] [Concomitant]
     Active Substance: VALPROIC ACID

REACTIONS (1)
  - Urticaria [Recovering/Resolving]

NARRATIVE: CASE EVENT DATE: 20200222
